FAERS Safety Report 10531337 (Version 1)
Quarter: 2014Q4

REPORT INFORMATION
  Report Type: Spontaneous
  Country: US (occurrence: US)
  Receive Date: 20141021
  Receipt Date: 20141021
  Transmission Date: 20150529
  Serious: Yes (Hospitalization)
  Sender: FDA-Public Use
  Company Number: PHHY2014US134155

PATIENT
  Age: 26 Year
  Sex: Male

DRUGS (3)
  1. ARTEMETHER,BENFLUMETOL [Suspect]
     Active Substance: ARTEMETHER\LUMEFANTRINE
     Indication: MALARIA
     Dosage: UNK
     Dates: start: 201308
  2. ARTESUNATE [Suspect]
     Active Substance: ARTESUNATE
     Route: 051
  3. ATOVAQUONE/PROGUANIL [Concomitant]
     Active Substance: ATOVAQUONE\PROGUANIL
     Indication: PRODUCT USED FOR UNKNOWN INDICATION
     Route: 065

REACTIONS (2)
  - Confusional state [Unknown]
  - Plasmodium falciparum infection [Unknown]
